FAERS Safety Report 5153451-4 (Version None)
Quarter: 2006Q4

REPORT INFORMATION
  Report Type: 
  Country: None (occurrence: None)
  Receive Date: 20061117
  Receipt Date: 20061108
  Transmission Date: 20070319
  Serious: Yes (Hospitalization)
  Sender: FDA-Public Use
  Company Number: FR-ABBOTT-06P-056-0349652-00

PATIENT
  Age: 58 Year
  Sex: Female

DRUGS (4)
  1. DEPAKENE [Suspect]
     Indication: EPILEPSY
     Route: 048
     Dates: end: 20060919
  2. DEPAKENE [Suspect]
     Dates: start: 20060929
  3. PERICIAZINE [Suspect]
     Indication: DRUG USE FOR UNKNOWN INDICATION
     Route: 048
     Dates: end: 20060919
  4. CLONAZEPAM [Concomitant]
     Indication: DRUG USE FOR UNKNOWN INDICATION
     Route: 048

REACTIONS (2)
  - BLOOD CREATINE PHOSPHOKINASE INCREASED [None]
  - CYTOLYTIC HEPATITIS [None]
